FAERS Safety Report 25221234 (Version 1)
Quarter: 2025Q2

REPORT INFORMATION
  Report Type: Spontaneous
  Country: US (occurrence: None)
  Receive Date: 20250421
  Receipt Date: 20250421
  Transmission Date: 20250716
  Serious: No
  Sender: FDA-CTU
  Company Number: None

PATIENT
  Age: 82 Year
  Sex: Female

DRUGS (1)
  1. JAKAFI [Suspect]
     Active Substance: RUXOLITINIB
     Dosage: 5 MG TWICE A DAY ORAL ?
     Route: 048
     Dates: start: 20200310

REACTIONS (2)
  - Paraesthesia [None]
  - Poor peripheral circulation [None]

NARRATIVE: CASE EVENT DATE: 20250421
